FAERS Safety Report 20652568 (Version 1)
Quarter: 2022Q1

REPORT INFORMATION
  Report Type: Spontaneous
  Country: CN (occurrence: CN)
  Receive Date: 20220330
  Receipt Date: 20220330
  Transmission Date: 20220424
  Serious: Yes (Other)
  Sender: FDA-Public Use
  Company Number: CN-STRIDES ARCOLAB LIMITED-2022SP003197

PATIENT

DRUGS (11)
  1. DEXAMETHASONE [Suspect]
     Active Substance: DEXAMETHASONE
     Indication: Langerhans^ cell histiocytosis
     Dosage: 6 MILLIGRAM/SQ. METER, DAY 1-5, EVERY 4 WEEKS WITH 4 COURSES;
     Route: 065
  2. DEXAMETHASONE [Suspect]
     Active Substance: DEXAMETHASONE
     Indication: Diabetes insipidus
     Dosage: 6 MILLIGRAM/SQ. METER, DAY 1-5,, EVERY 3 WEEKS FOR 8 COURSES
     Route: 065
  3. PREDNISONE [Suspect]
     Active Substance: PREDNISONE
     Indication: Langerhans^ cell histiocytosis
     Dosage: UNK
     Route: 065
  4. CYTARABINE [Suspect]
     Active Substance: CYTARABINE
     Indication: Langerhans^ cell histiocytosis
     Dosage: 150 MILLIGRAM/SQ. METER, DAY 1-5, EVERY 4 WEEKS WITH 4 COURSES;
     Route: 065
  5. CYTARABINE [Suspect]
     Active Substance: CYTARABINE
     Indication: Diabetes insipidus
     Dosage: 150 MILLIGRAM/SQ. METER, DAY 1-5, , EVERY 3 WEEKS FOR 8 COURSES
     Route: 065
  6. VINDESINE [Suspect]
     Active Substance: VINDESINE
     Indication: Langerhans^ cell histiocytosis
     Dosage: UNK,2009-LCH REGIMEN
     Route: 065
  7. VINDESINE [Suspect]
     Active Substance: VINDESINE
     Indication: Diabetes insipidus
     Dosage: 3 MILLIGRAM/SQ. METER, DAY 1, EVERY 4 WEEKS WITH 4 COURSES;
     Route: 065
  8. VINDESINE [Suspect]
     Active Substance: VINDESINE
     Dosage: 3 MILLIGRAM/SQ. METER, DAY 1, EVERY 3 WEEKS FOR 8 COURSES
     Route: 065
  9. CLADRIBINE [Suspect]
     Active Substance: CLADRIBINE
     Indication: Langerhans^ cell histiocytosis
     Dosage: 9 MILLIGRAM/SQ. METER, DAY 2-5,EVERY 4 WEEKS WITH 4 COURSES
     Route: 065
  10. CLADRIBINE [Suspect]
     Active Substance: CLADRIBINE
     Indication: Diabetes insipidus
     Dosage: 9 MILLIGRAM/SQ. METER, DAY 2-5,EVERY 3 WEEKS FOR 8 COURSES
     Route: 065
  11. MERCAPTOPURINE [Suspect]
     Active Substance: MERCAPTOPURINE
     Indication: Langerhans^ cell histiocytosis
     Dosage: UNK
     Route: 065

REACTIONS (3)
  - Myelosuppression [Unknown]
  - Drug ineffective [Unknown]
  - Off label use [Unknown]
